FAERS Safety Report 4960273-3 (Version None)
Quarter: 2006Q1

REPORT INFORMATION
  Report Type: 
  Country: None (occurrence: None)
  Receive Date: 20060328
  Receipt Date: 20060315
  Transmission Date: 20060701
  Serious: Yes (Hospitalization)
  Sender: FDA-Public Use
  Company Number: 2006037034

PATIENT
  Age: 84 Year
  Sex: Male

DRUGS (3)
  1. FLUCONAZOLE [Suspect]
     Indication: GINGIVITIS
     Dosage: 50 MG/5 ML (UNKNOWN), ORAL
     Route: 048
  2. PREVISCAN (FLUINDIONE) [Suspect]
     Indication: CARDIAC FIBRILLATION
     Dosage: 10 MG (20 MG, INTERVAL: EVERY DAY), ORAL
     Route: 048
  3. PREVISCAN (FLUINDIONE) [Suspect]
     Indication: ISCHAEMIC CARDIOMYOPATHY
     Dosage: 10 MG (20 MG, INTERVAL: EVERY DAY), ORAL
     Route: 048

REACTIONS (6)
  - CARDIOPULMONARY FAILURE [None]
  - CEREBRAL HAEMORRHAGE [None]
  - DRUG INTERACTION [None]
  - GINGIVITIS [None]
  - INTERNATIONAL NORMALISED RATIO INCREASED [None]
  - PROTHROMBIN LEVEL DECREASED [None]
